FAERS Safety Report 5191755-X (Version None)
Quarter: 2006Q4

REPORT INFORMATION
  Report Type: 
  Country: None (occurrence: None)
  Receive Date: 20061219
  Receipt Date: 20061206
  Transmission Date: 20070319
  Serious: No
  Sender: FDA-Public Use
  Company Number: B0450564A

PATIENT
  Age: 58 Year
  Sex: Male

DRUGS (4)
  1. ALKERAN [Suspect]
     Indication: MULTIPLE MYELOMA
  2. PREDNISOLONE [Suspect]
  3. PAMIDRONIC ACID (FORMULATION UNKNOWN) (PAMIDRONIC ACID) [Suspect]
     Dosage: 90 MG
  4. ZOLEDRONATE (FORMULATION UNKNOWN) (ZOLEDRONATE) [Suspect]
     Dosage: 4 MG / INTRAVENOUS
     Route: 042

REACTIONS (3)
  - OSTEONECROSIS [None]
  - SKIN ODOUR ABNORMAL [None]
  - SWELLING [None]
